FAERS Safety Report 8221490-2 (Version None)
Quarter: 2012Q1

REPORT INFORMATION
  Report Type: 
  Country: None (occurrence: None)
  Receive Date: 20120320
  Receipt Date: 20120316
  Transmission Date: 20120608
  Serious: Yes (Other)
  Sender: FDA-Public Use
  Company Number: VE-PFIZER INC-2012043435

PATIENT
  Age: 74 Year
  Sex: Female

DRUGS (3)
  1. CADUET [Suspect]
     Indication: HYPERTENSION
     Dosage: 5/20 MG, ONCE DAILY
     Route: 048
     Dates: start: 20100101
  2. CADUET [Suspect]
     Indication: HYPERCHOLESTEROLAEMIA
  3. HYZAAR [Concomitant]
     Indication: HYPERTENSION
     Dosage: 25/125 MG, ONCE DAILY
     Route: 048

REACTIONS (1)
  - NASAL ABSCESS [None]
